FAERS Safety Report 4955071-0 (Version None)
Quarter: 2006Q1

REPORT INFORMATION
  Report Type: 
  Country: None (occurrence: None)
  Receive Date: 20060322
  Receipt Date: 20060228
  Transmission Date: 20060701
  Serious: No
  Sender: FDA-Public Use
  Company Number: US200603001271

PATIENT
  Age: 52 Year
  Sex: Female

DRUGS (1)
  1. CYMBALTA [Suspect]
     Dosage: 60 MG
     Dates: start: 20050522, end: 20060201

REACTIONS (1)
  - BLOOD BILIRUBIN INCREASED [None]
